FAERS Safety Report 5778103-9 (Version None)
Quarter: 2008Q2

REPORT INFORMATION
  Report Type: 
  Country: None (occurrence: None)
  Receive Date: 20080619
  Receipt Date: 20080609
  Transmission Date: 20081010
  Serious: Yes (Hospitalization)
  Sender: FDA-Public Use
  Company Number: FR-SOLVAY-00208002613

PATIENT
  Age: 838 Month
  Sex: Female
  Weight: 102 kg

DRUGS (11)
  1. PERINDOPRIL ERBUMINE [Suspect]
     Indication: DRUG USE FOR UNKNOWN INDICATION
     Dosage: DAILY DOSE: 4 MILLIGRAM(S)
     Route: 048
  2. OFLOCET [Concomitant]
     Indication: DRUG USE FOR UNKNOWN INDICATION
     Dosage: DAILY DOSE:  UNKNOWN
     Route: 065
     Dates: end: 20071014
  3. STABLON [Concomitant]
     Indication: DRUG USE FOR UNKNOWN INDICATION
     Dosage: DAILY DOSE: 25 MILLIGRAM(S)
     Route: 048
  4. CARBIMAZOLE [Suspect]
     Indication: BASEDOW'S DISEASE
     Dosage: DAILY DOSE: 60 MILLIGRAM(S)
     Route: 048
     Dates: start: 20070801, end: 20071012
  5. LEXOMIL [Suspect]
     Indication: ANXIETY
     Dosage: DAILY DOSE: 1 DOSAGE FORM
     Route: 048
  6. SOTALOL HCL [Concomitant]
     Indication: DRUG USE FOR UNKNOWN INDICATION
     Dosage: DAILY DOSE:  UNKNOWN
     Route: 065
  7. FLUINDIONE [Concomitant]
     Indication: DRUG USE FOR UNKNOWN INDICATION
     Dosage: DAILY DOSE:  UNKNOWN
     Route: 065
     Dates: end: 20071107
  8. PROPYL-THIOURACIL [Suspect]
     Indication: BASEDOW'S DISEASE
     Dosage: DAILY DOSE: 15 DOSAGE FORM
     Route: 048
     Dates: start: 20071012, end: 20071020
  9. PROPYL-THIOURACIL [Suspect]
     Dosage: DAILY DOSE: 12 DOSAGE FORM
     Route: 048
     Dates: start: 20071021, end: 20071210
  10. SYMBICORT [Concomitant]
     Indication: DRUG USE FOR UNKNOWN INDICATION
     Dosage: DAILY DOSE:  UNKNOWN
     Route: 065
  11. SPIRIVA [Concomitant]
     Indication: DRUG USE FOR UNKNOWN INDICATION
     Dosage: DAILY DOSE:  UNKNOWN
     Route: 065

REACTIONS (4)
  - ARRHYTHMIA [None]
  - BASEDOW'S DISEASE [None]
  - HEPATITIS [None]
  - URINARY TRACT INFECTION [None]
